FAERS Safety Report 8630850 (Version 4)
Quarter: 2013Q1

REPORT INFORMATION
  Report Type: Spontaneous
  Country: US (occurrence: US)
  Receive Date: 20120622
  Receipt Date: 20130213
  Transmission Date: 20140127
  Serious: Yes (Other)
  Sender: FDA-Public Use
  Company Number: US-GILEAD-2012-0056916

PATIENT
  Sex: Female

DRUGS (10)
  1. LETAIRIS [Suspect]
     Indication: PULMONARY ARTERIAL HYPERTENSION
     Dosage: 10 MG, UNK
     Route: 048
     Dates: start: 20110927, end: 20120619
  2. ADCIRCA [Concomitant]
     Dosage: UNK
     Dates: start: 20120621
  3. AMBIEN [Concomitant]
     Dosage: UNK
     Dates: start: 20120925
  4. CONCEPT DHA [Concomitant]
     Dosage: UNK
     Dates: start: 20120828
  5. FUROSEMIDE [Concomitant]
     Dosage: UNK
     Dates: start: 20111129
  6. LEXAPRO [Concomitant]
     Dosage: UNK
     Dates: start: 20130102
  7. LORTAB                             /00607101/ [Concomitant]
     Dosage: UNK
     Dates: start: 20130205
  8. NEURONTIN [Concomitant]
     Dosage: UNK
     Dates: start: 20130123
  9. POTASSIUM CHLORIDE [Concomitant]
     Dosage: UNK
     Dates: start: 20100511
  10. REMODULIN [Concomitant]
     Dosage: UNK
     Dates: start: 20120912

REACTIONS (1)
  - Pregnancy [Recovered/Resolved]
